FAERS Safety Report 8798584 (Version 3)
Quarter: 2014Q1

REPORT INFORMATION
  Report Type: Spontaneous
  Country: US (occurrence: US)
  Receive Date: 20120917
  Receipt Date: 20140326
  Transmission Date: 20141002
  Serious: No
  Sender: FDA-Public Use
  Company Number: US-ASTRAZENECA-2012SE65725

PATIENT
  Age: 60 Year
  Sex: Female
  Weight: 61.7 kg

DRUGS (10)
  1. NEXIUM [Suspect]
     Indication: ULCER
     Route: 048
     Dates: end: 20131128
  2. NEXIUM [Suspect]
     Indication: GASTROOESOPHAGEAL REFLUX DISEASE
     Route: 048
     Dates: end: 20131128
  3. NEXIUM [Suspect]
     Indication: ULCER
     Route: 048
     Dates: start: 20131128
  4. NEXIUM [Suspect]
     Indication: GASTROOESOPHAGEAL REFLUX DISEASE
     Route: 048
     Dates: start: 20131128
  5. LORTAB [Concomitant]
     Indication: PAIN IN JAW
     Dosage: NOT REPORTED NR
     Route: 048
  6. LORTAB [Concomitant]
     Indication: NECK PAIN
     Dosage: NOT REPORTED NR
     Route: 048
  7. IBUPROFEN [Concomitant]
     Indication: PAIN
     Route: 048
     Dates: start: 2013
  8. XANAX [Concomitant]
     Indication: ANXIETY
     Route: 048
  9. PROPANOLOL [Concomitant]
     Indication: BLOOD PRESSURE ABNORMAL
     Route: 048
  10. MULTIVITAMIN [Concomitant]
     Indication: PROPHYLAXIS
     Dosage: 1 OR 2 DAILY
     Route: 048

REACTIONS (15)
  - Arthritis [Unknown]
  - Arthritis [Unknown]
  - Dysstasia [Unknown]
  - Gastrooesophageal reflux disease [Unknown]
  - Intervertebral disc degeneration [Unknown]
  - Memory impairment [Unknown]
  - Pain [Unknown]
  - Panic attack [Unknown]
  - Rheumatoid arthritis [Unknown]
  - Abdominal pain upper [Unknown]
  - Confusional state [Unknown]
  - Adverse event [Unknown]
  - Intentional drug misuse [Unknown]
  - Off label use [Unknown]
  - Drug dose omission [Not Recovered/Not Resolved]
